FAERS Safety Report 7249565-5 (Version None)
Quarter: 2011Q1

REPORT INFORMATION
  Report Type: 
  Country: None (occurrence: None)
  Receive Date: 20110128
  Receipt Date: 20101213
  Transmission Date: 20110831
  Serious: Yes (Death, Hospitalization)
  Sender: FDA-Public Use
  Company Number: JP-BAYER-200915222BYL

PATIENT
  Sex: Male
  Weight: 52 kg

DRUGS (11)
  1. COVERSYL [Concomitant]
     Indication: HYPERTENSION
     Dosage: 2 MG, QD
     Route: 048
  2. LIVACT [Concomitant]
     Indication: LIVER DISORDER
     Dosage: 8.3 G, QD
     Route: 048
  3. ALTAT [Concomitant]
     Indication: GASTRITIS
     Dosage: 150 MG, QD
     Dates: start: 20090812
  4. NEXAVAR [Suspect]
     Indication: HEPATIC NEOPLASM MALIGNANT
     Dosage: 400 MG, BID
     Route: 048
     Dates: start: 20091028
  5. MITIGLINIDE [Concomitant]
     Indication: DIABETES MELLITUS
     Dosage: 30 MG, QD
     Route: 048
     Dates: start: 20051201
  6. NEXAVAR [Suspect]
     Dosage: 400 MG, QD
     Route: 048
     Dates: start: 20091202, end: 20100130
  7. URSO 250 [Concomitant]
     Indication: HEPATIC FUNCTION ABNORMAL
     Dosage: 900 MG, QD
     Route: 048
  8. CONTRAST MEDIA [Concomitant]
     Dosage: UNK
     Route: 042
     Dates: start: 20100318, end: 20100318
  9. MUCOSTA [Concomitant]
     Indication: GASTRITIS
     Dosage: 300 MG, QD
     Route: 048
  10. GLAKAY [Concomitant]
     Dosage: UNK
     Route: 048
  11. CONTRAST MEDIA [Concomitant]
     Dosage: UNK
     Route: 042
     Dates: start: 20100318, end: 20100318

REACTIONS (7)
  - HEPATIC FAILURE [None]
  - VOMITING [None]
  - ABDOMINAL PAIN UPPER [None]
  - HEPATIC INFARCTION [None]
  - PYREXIA [None]
  - MALAISE [None]
  - PALMAR-PLANTAR ERYTHRODYSAESTHESIA SYNDROME [None]
